FAERS Safety Report 6399775-4 (Version None)
Quarter: 2009Q4

REPORT INFORMATION
  Report Type: 
  Country: None (occurrence: None)
  Receive Date: 20091014
  Receipt Date: 20091002
  Transmission Date: 20100525
  Serious: Yes (Death, Other)
  Sender: FDA-Public Use
  Company Number: FR-ELI_LILLY_AND_COMPANY-FR200910000419

PATIENT
  Age: 40 Year
  Sex: Female

DRUGS (2)
  1. ZYPREXA [Suspect]
     Indication: BIPOLAR I DISORDER
     Dosage: 20 MG, DAILY (1/D)
     Route: 048
  2. TERCIAN [Concomitant]
     Indication: BIPOLAR I DISORDER
     Dosage: 120 MG, DAILY (1/D)
     Route: 048

REACTIONS (2)
  - NECROTISING COLITIS [None]
  - PULMONARY EMBOLISM [None]
